FAERS Safety Report 15320118 (Version 1)
Quarter: 2018Q3

REPORT INFORMATION
  Report Type: Spontaneous
  Country: US (occurrence: US)
  Receive Date: 20180827
  Receipt Date: 20180827
  Transmission Date: 20181010
  Serious: No
  Sender: FDA-Public Use
  Company Number: US-PFIZER INC-2018340167

PATIENT
  Age: 52 Year
  Sex: Female

DRUGS (3)
  1. LYRICA [Suspect]
     Active Substance: PREGABALIN
     Indication: FIBROMYALGIA
     Dosage: 2 DF, 2X/DAY (PRESCRIBED TWO CAPSULES TWICE A DAY)
     Dates: start: 2017
  2. LYRICA [Suspect]
     Active Substance: PREGABALIN
     Dosage: 1 DF, 2X/DAY (SHE DECIDED TO CUT BACK AND TAKE ON ONE CAPSULES TWICE A DAY OF PREGABALIN)
  3. LYRICA [Suspect]
     Active Substance: PREGABALIN
     Dosage: TWO CAPSULES IN THE MORNING, TWO CAPSULES IN THE EVENING WITH EXTRA CAPSULES TO TAKE AS NEEDED

REACTIONS (7)
  - Gait disturbance [Unknown]
  - Off label use [Unknown]
  - Neuralgia [Unknown]
  - Drug effect incomplete [Unknown]
  - Body height decreased [Unknown]
  - Vertigo [Unknown]
  - Intentional product misuse [Unknown]

NARRATIVE: CASE EVENT DATE: 2018
